FAERS Safety Report 23478168 (Version 1)
Quarter: 2024Q1

REPORT INFORMATION
  Report Type: Report from Study
  Country: US (occurrence: US)
  Receive Date: 20240204
  Receipt Date: 20240204
  Transmission Date: 20240410
  Serious: No
  Sender: FDA-Public Use
  Company Number: US-EXELIXIS-CABO-23068530

PATIENT
  Sex: Female

DRUGS (4)
  1. CABOMETYX [Suspect]
     Active Substance: CABOZANTINIB S-MALATE
     Indication: Ewing^s sarcoma
     Dosage: 60 MG, QD
     Route: 048
     Dates: start: 20230813
  2. CABOMETYX [Suspect]
     Active Substance: CABOZANTINIB S-MALATE
     Indication: Retroperitoneal cancer
     Dosage: 40 MG, QD
     Dates: start: 20231011
  3. NEULASTA [Suspect]
     Active Substance: PEGFILGRASTIM
     Indication: Neutrophil count decreased
     Dosage: UNK
  4. MILK OF MAGNESIA [Concomitant]
     Active Substance: MAGNESIUM HYDROXIDE

REACTIONS (17)
  - Hair colour changes [Recovered/Resolved]
  - Neutrophil count decreased [Not Recovered/Not Resolved]
  - Stomatitis [Recovered/Resolved]
  - Pruritus [Recovered/Resolved]
  - Fatigue [Unknown]
  - Rash [Recovered/Resolved]
  - Dysphonia [Unknown]
  - Diarrhoea [Recovered/Resolved]
  - Sensitive skin [Recovered/Resolved]
  - Sleep disorder [Not Recovered/Not Resolved]
  - Chest discomfort [Unknown]
  - Pain [Recovered/Resolved]
  - Gastrooesophageal reflux disease [Unknown]
  - Arthralgia [Recovered/Resolved]
  - Headache [Unknown]
  - Dizziness [Unknown]
  - Off label use [Unknown]
